FAERS Safety Report 8221653-6 (Version None)
Quarter: 2012Q1

REPORT INFORMATION
  Report Type: 
  Country: None (occurrence: None)
  Receive Date: 20120320
  Receipt Date: 20120309
  Transmission Date: 20120608
  Serious: Yes (Other)
  Sender: FDA-Public Use
  Company Number: MX-JNJFOC-20120308236

PATIENT
  Sex: Female
  Weight: 100 kg

DRUGS (7)
  1. METFORMIN HCL [Concomitant]
     Route: 065
  2. ATEMPERATOR [Concomitant]
     Route: 065
  3. ORATANE [Concomitant]
     Route: 065
  4. SEROQUEL [Concomitant]
     Route: 065
  5. HALOPERIDOL [Suspect]
     Indication: PRODUCT USED FOR UNKNOWN INDICATION
     Route: 065
  6. BEZAFIBRATE [Concomitant]
     Route: 065
  7. CLONAZEPAM [Concomitant]
     Route: 065

REACTIONS (3)
  - SEDATION [None]
  - IMMOBILE [None]
  - EYE MOVEMENT DISORDER [None]
